FAERS Safety Report 8093023-5 (Version None)
Quarter: 2012Q1

REPORT INFORMATION
  Report Type: 
  Country: None (occurrence: None)
  Receive Date: 20120128
  Receipt Date: 20111024
  Transmission Date: 20120608
  Serious: No
  Sender: FDA-Public Use
  Company Number: US-ABBOTT-10P-163-0664324-00

PATIENT
  Age: 16 Year
  Sex: Female

DRUGS (5)
  1. IMITREX [Concomitant]
     Indication: MIGRAINE
     Dosage: PRN
  2. IRON [Concomitant]
     Indication: ANAEMIA
  3. NORTRIPTYLINE HCL [Concomitant]
     Indication: HEADACHE
     Dosage: PRN
  4. HUMIRA [Suspect]
     Indication: CROHN'S DISEASE
     Dates: start: 20091101
  5. ZOLOFT [Concomitant]
     Indication: OBSESSIVE-COMPULSIVE DISORDER

REACTIONS (5)
  - ANAEMIA [None]
  - FATIGUE [None]
  - INJECTION SITE PAIN [None]
  - MIGRAINE [None]
  - ANXIETY [None]
